FAERS Safety Report 13958437 (Version 1)
Quarter: 2017Q3

REPORT INFORMATION
  Report Type: Spontaneous
  Country: US (occurrence: None)
  Receive Date: 20170911
  Receipt Date: 20170911
  Transmission Date: 20171128
  Serious: No
  Sender: FDA-Public Use
  Company Number: None

PATIENT
  Age: 48 Year
  Sex: Male

DRUGS (1)
  1. CABOMETYX [Suspect]
     Active Substance: CABOZANTINIB S-MALATE

REACTIONS (5)
  - Constipation [None]
  - Fatigue [None]
  - Peripheral swelling [None]
  - Paraesthesia [None]
  - Blood pressure systolic increased [None]

NARRATIVE: CASE EVENT DATE: 20170911
